FAERS Safety Report 14707652 (Version 1)
Quarter: 2018Q2

REPORT INFORMATION
  Report Type: Spontaneous
  Country: FR (occurrence: FR)
  Receive Date: 20180403
  Receipt Date: 20180403
  Transmission Date: 20180711
  Serious: Yes (Other)
  Sender: FDA-Public Use
  Company Number: FR-MERCK KGAA-2044973

PATIENT
  Age: 33 Year
  Sex: Female
  Weight: 74 kg

DRUGS (1)
  1. NOVOTHYROX [Suspect]
     Active Substance: LEVOTHYROXINE SODIUM
     Indication: THYROIDECTOMY
     Route: 048
     Dates: start: 20170401, end: 20171027

REACTIONS (8)
  - Blood thyroid stimulating hormone normal [Recovered/Resolved]
  - Headache [Recovered/Resolved]
  - Vertigo [Recovered/Resolved]
  - Alopecia [Recovered/Resolved]
  - Formication [Recovered/Resolved]
  - Cervical radiculopathy [Recovered/Resolved]
  - Asthenia [Recovered/Resolved]
  - Tachycardia [Recovered/Resolved]

NARRATIVE: CASE EVENT DATE: 20170403
